FAERS Safety Report 4901688-9 (Version None)
Quarter: 2006Q1

REPORT INFORMATION
  Report Type: 
  Country: None (occurrence: None)
  Receive Date: 20060206
  Receipt Date: 20051102
  Transmission Date: 20060701
  Serious: Yes (Hospitalization, Other)
  Sender: FDA-Public Use
  Company Number: US-BRISTOL-MYERS SQUIBB COMPANY-13165758

PATIENT
  Age: 39 Year
  Sex: Female
  Weight: 83 kg

DRUGS (8)
  1. TAXOL [Suspect]
     Indication: BREAST CANCER METASTATIC
     Route: 042
     Dates: end: 20051101
  2. DECADRON PHOSPHATE [Concomitant]
     Indication: PREMEDICATION
     Route: 042
  3. BENADRYL [Concomitant]
     Indication: PREMEDICATION
     Route: 042
  4. TYLENOL [Concomitant]
     Indication: PREMEDICATION
     Route: 048
  5. FENTANYL [Concomitant]
     Route: 062
  6. LEXAPRO [Concomitant]
  7. PROTONIX [Concomitant]
  8. XANAX [Concomitant]

REACTIONS (2)
  - HOSPITALISATION [None]
  - PRURITUS GENERALISED [None]
